FAERS Safety Report 19677032 (Version 1)
Quarter: 2021Q3

REPORT INFORMATION
  Report Type: Spontaneous
  Country: ES (occurrence: ES)
  Receive Date: 20210809
  Receipt Date: 20210809
  Transmission Date: 20211014
  Serious: Yes (Other)
  Sender: FDA-Public Use
  Company Number: ES-PFIZER INC-202100946927

PATIENT
  Age: 54 Year
  Sex: Female
  Weight: 65 kg

DRUGS (2)
  1. BEVACIZUMAB. [Concomitant]
     Active Substance: BEVACIZUMAB
     Indication: BREAST NEOPLASM
     Dosage: 5MG/KG/DAY, DAY 1 AND 15/28DAYS
     Route: 042
     Dates: start: 20210323
  2. PACLITAXEL. [Suspect]
     Active Substance: PACLITAXEL
     Indication: BREAST NEOPLASM
     Dosage: 240 MG/M2, CYCLIC(FREQ:28 DAYS; 80 MG / M2 / DAY 1,8 Y 15 / 28 DAYS)
     Route: 042
     Dates: start: 20210323, end: 20210518

REACTIONS (1)
  - Hepatotoxicity [Not Recovered/Not Resolved]

NARRATIVE: CASE EVENT DATE: 20210518
